FAERS Safety Report 12075117 (Version 1)
Quarter: 2016Q1

REPORT INFORMATION
  Report Type: Spontaneous
  Country: BR (occurrence: BR)
  Receive Date: 20160212
  Receipt Date: 20160212
  Transmission Date: 20160526
  Serious: Yes (Other)
  Sender: FDA-Public Use
  Company Number: BR-ELI_LILLY_AND_COMPANY-BR201602000527

PATIENT
  Sex: Male
  Weight: 72 kg

DRUGS (10)
  1. HUMALOG MIX75/25 [Suspect]
     Active Substance: INSULIN LISPRO
     Dosage: 40 IU, EACH MORNING
     Route: 058
  2. HUMALOG MIX75/25 [Suspect]
     Active Substance: INSULIN LISPRO
     Dosage: 18 IU, EACH EVENING
     Route: 058
  3. WARFARIN [Concomitant]
     Active Substance: WARFARIN
     Indication: BLOOD DISORDER
     Dosage: UNK, UNKNOWN
     Route: 065
  4. VASOGARD [Concomitant]
     Active Substance: CILOSTAZOL
     Indication: ANGIOPATHY
     Dosage: UNK, UNKNOWN
     Route: 065
  5. LEVOTHYROXINE. [Concomitant]
     Active Substance: LEVOTHYROXINE
     Indication: THYROID DISORDER
     Dosage: UNK, UNKNOWN
     Route: 065
  6. HUMALOG MIX75/25 [Suspect]
     Active Substance: INSULIN LISPRO
     Indication: DIABETES MELLITUS
     Dosage: 30 IU, EACH MORNING
     Route: 058
  7. AMLODIPINE [Concomitant]
     Active Substance: AMLODIPINE BESYLATE
     Dosage: UNK, UNKNOWN
     Route: 065
  8. SELOKEEN [Concomitant]
     Active Substance: METOPROLOL
     Indication: CARDIAC DISORDER
     Dosage: UNK, UNKNOWN
     Route: 065
  9. SIMVASTATINE [Concomitant]
     Active Substance: SIMVASTATIN
     Indication: CARDIAC DISORDER
     Dosage: UNK, UNKNOWN
     Route: 065
  10. NORVASK                            /00972401/ [Concomitant]
     Indication: BLOOD PRESSURE MEASUREMENT
     Dosage: UNK, UNKNOWN
     Route: 065

REACTIONS (5)
  - Diabetes mellitus inadequate control [Unknown]
  - Injection site mass [Unknown]
  - Cataract [Unknown]
  - Impaired healing [Unknown]
  - Visual impairment [Unknown]
